FAERS Safety Report 11108878 (Version 2)
Quarter: 2015Q3

REPORT INFORMATION
  Report Type: Spontaneous
  Country: US (occurrence: US)
  Receive Date: 20150513
  Receipt Date: 20150810
  Transmission Date: 20151125
  Serious: Yes (Hospitalization)
  Sender: FDA-Public Use
  Company Number: US-BAYER-2015-222454

PATIENT
  Age: 32 Year
  Sex: Female
  Weight: 58.96 kg

DRUGS (2)
  1. COLACE [Concomitant]
     Active Substance: DOCUSATE SODIUM
  2. MIRENA [Suspect]
     Active Substance: LEVONORGESTREL
     Indication: CONTRACEPTION
     Dosage: 20 MCG/24HR, CONT
     Route: 015
     Dates: start: 20130711, end: 20140915

REACTIONS (10)
  - Pelvic pain [Recovered/Resolved]
  - Uterine perforation [Recovered/Resolved]
  - Depression [None]
  - Back pain [None]
  - Anxiety [None]
  - Emotional distress [None]
  - Abdominal pain lower [Recovered/Resolved]
  - Injury [Recovered/Resolved]
  - Scar [None]
  - Device difficult to use [None]

NARRATIVE: CASE EVENT DATE: 201409
